FAERS Safety Report 5510483-1 (Version None)
Quarter: 2007Q4

REPORT INFORMATION
  Report Type: 
  Country: None (occurrence: None)
  Receive Date: 20071108
  Receipt Date: 20071102
  Transmission Date: 20080405
  Serious: No
  Sender: FDA-Public Use
  Company Number: DE-AVENTIS-200712482DE

PATIENT
  Age: 69 Year
  Sex: Male

DRUGS (1)
  1. ARAVA [Suspect]
     Route: 048
     Dates: start: 20060101

REACTIONS (2)
  - CARDIAC OUTPUT DECREASED [None]
  - VITAL CAPACITY DECREASED [None]
